FAERS Safety Report 19097291 (Version 1)
Quarter: 2021Q2

REPORT INFORMATION
  Report Type: Report from Study
  Country: GB (occurrence: GB)
  Receive Date: 20210406
  Receipt Date: 20210406
  Transmission Date: 20210717
  Serious: Yes (Hospitalization)
  Sender: FDA-Public Use
  Company Number: GB-BAYER-2021-109260

PATIENT
  Age: 48 Year
  Sex: Female

DRUGS (6)
  1. RED BLOOD CELLS [Concomitant]
     Active Substance: HUMAN RED BLOOD CELL
     Indication: PACKED RED BLOOD CELL TRANSFUSION
     Dosage: UNK
     Route: 065
     Dates: start: 20200114
  2. CRYOPRECIPITATE [Concomitant]
     Active Substance: CRYOPRECIPITATED ANTIHEMOPHILIC FACTOR (HUMAN)
     Indication: TRANSFUSION
     Dosage: UNK
     Route: 065
     Dates: start: 20200114
  3. FRESH FROZEN PLASMA [Concomitant]
     Active Substance: HUMAN PLASMA
     Indication: TRANSFUSION
     Dosage: UNK
     Route: 065
     Dates: start: 20200114
  4. TRASYLOL [Suspect]
     Active Substance: APROTININ
     Indication: AORTIC DISSECTION
     Dosage: 700 MILLILITRE EVERY 1 DAY(S) LOADING DOSE 2 MILLION KIU
     Route: 065
     Dates: start: 20200114, end: 20200114
  5. HEPARIN [Concomitant]
     Active Substance: HEPARIN SODIUM
     Indication: ANTICOAGULANT THERAPY
     Dosage: TOTAL HEPARIN DOSAGE DURING SURGERY : 55.
     Route: 065
     Dates: start: 20200114, end: 20200114
  6. PLATELETS [Concomitant]
     Active Substance: HUMAN PLATELET, ALLOGENIC
     Indication: PLATELET TRANSFUSION
     Dosage: UNK
     Route: 065
     Dates: start: 20200114

REACTIONS (3)
  - Product use in unapproved indication [Unknown]
  - Renal impairment [Recovering/Resolving]
  - Off label use [Unknown]

NARRATIVE: CASE EVENT DATE: 20200114
